FAERS Safety Report 25530848 (Version 1)
Quarter: 2025Q3

REPORT INFORMATION
  Report Type: Spontaneous
  Country: EU (occurrence: EU)
  Receive Date: 20250708
  Receipt Date: 20250708
  Transmission Date: 20251021
  Serious: Yes (Hospitalization)
  Sender: TEVA
  Company Number: None

PATIENT
  Age: 64 Year
  Sex: Female
  Weight: 70 kg

DRUGS (2)
  1. NEBIVOLOL [Suspect]
     Active Substance: NEBIVOLOL
     Indication: Intentional overdose
     Route: 048
     Dates: start: 20250422, end: 20250422
  2. TACROLIMUS [Suspect]
     Active Substance: TACROLIMUS
     Indication: Intentional overdose
     Route: 048
     Dates: start: 20250422, end: 20250422

REACTIONS (2)
  - Acute kidney injury [Recovered/Resolved]
  - Poisoning deliberate [Recovered/Resolved]

NARRATIVE: CASE EVENT DATE: 20250422
